FAERS Safety Report 5656886-6 (Version None)
Quarter: 2008Q1

REPORT INFORMATION
  Report Type: 
  Country: None (occurrence: None)
  Receive Date: 20080306
  Receipt Date: 20080306
  Transmission Date: 20080703
  Serious: No
  Sender: FDA-Public Use
  Company Number: None

PATIENT
  Age: 26 Year
  Sex: Male
  Weight: 80 kg

DRUGS (7)
  1. XOLAIR [Suspect]
     Indication: ASTHMA
  2. PREDNISONE [Suspect]
  3. ASPIRIN [Concomitant]
  4. ADVAIR DISKUS 100/50 [Concomitant]
  5. NASONEX [Concomitant]
  6. COMBIVENT [Concomitant]
  7. FOSOMAX [Concomitant]

REACTIONS (1)
  - PULMONARY EMBOLISM [None]
